FAERS Safety Report 19288758 (Version 3)
Quarter: 2024Q4

REPORT INFORMATION
  Report Type: Spontaneous
  Country: FI (occurrence: FI)
  Receive Date: 20210522
  Receipt Date: 20241029
  Transmission Date: 20250115
  Serious: Yes (Death, Other)
  Sender: ACCORD
  Company Number: None

PATIENT
  Age: 14 Year
  Sex: Female

DRUGS (21)
  1. ETOPOSIDE [Suspect]
     Active Substance: ETOPOSIDE
     Indication: Bone marrow conditioning regimen
     Route: 065
  2. MYCOPHENOLATE MOFETIL [Suspect]
     Active Substance: MYCOPHENOLATE MOFETIL
     Indication: Prophylaxis against graft versus host disease
     Dosage: SHORT COURSE
     Route: 065
  3. METHOTREXATE [Suspect]
     Active Substance: METHOTREXATE
     Indication: Prophylaxis against graft versus host disease
     Dosage: SHORT COURSE
     Route: 065
  4. CASPOFUNGIN [Suspect]
     Active Substance: CASPOFUNGIN
     Indication: Antifungal prophylaxis
     Dosage: 50 MG/M2/DAY IV FROM DAY 4 TO DAY 17
  5. CEFTAZIDIME [Suspect]
     Active Substance: CEFTAZIDIME
     Indication: Ophthalmic herpes zoster
     Route: 065
  6. AZTREONAM [Suspect]
     Active Substance: AZTREONAM
     Indication: Product used for unknown indication
     Route: 065
  7. FLUCONAZOLE [Suspect]
     Active Substance: FLUCONAZOLE
     Indication: Antifungal prophylaxis
     Route: 065
  8. ACYCLOVIR [Suspect]
     Active Substance: ACYCLOVIR
     Indication: Ophthalmic herpes zoster
     Route: 065
  9. CYCLOPHOSPHAMIDE [Suspect]
     Active Substance: CYCLOPHOSPHAMIDE
     Indication: Bone marrow conditioning regimen
     Route: 065
  10. VORICONAZOLE [Suspect]
     Active Substance: VORICONAZOLE
     Indication: Antifungal prophylaxis
     Dosage: 14 MG/KG/DAY I.V. WAS ADDED ON DAY 17
     Route: 042
  11. NETILMICIN [Suspect]
     Active Substance: NETILMICIN
     Indication: Ophthalmic herpes zoster
     Route: 065
  12. VANCOMYCIN [Suspect]
     Active Substance: VANCOMYCIN
     Indication: Ophthalmic herpes zoster
     Route: 065
  13. GANCICLOVIR [Suspect]
     Active Substance: GANCICLOVIR
     Indication: Ophthalmic herpes zoster
     Route: 065
  14. AMPHOTERICIN B [Suspect]
     Active Substance: AMPHOTERICIN B
     Indication: Antifungal prophylaxis
     Dosage: 5 MG/KG/DAY I.V. ON DAY 18
     Route: 042
  15. TEICOPLANIN [Suspect]
     Active Substance: TEICOPLANIN
     Indication: Ophthalmic herpes zoster
     Route: 065
  16. CLINDAMYCIN [Suspect]
     Active Substance: CLINDAMYCIN
     Indication: C-reactive protein increased
  17. MEROPENEM [Suspect]
     Active Substance: MEROPENEM
     Indication: Pyrexia
  18. DOXORUBICIN HYDROCHLORIDE [Suspect]
     Active Substance: DOXORUBICIN HYDROCHLORIDE
     Indication: Antifungal prophylaxis
     Dosage: QD (5 MG/KG/DAY I.V. ON DAY 18)
  19. NOREPINEPHRINE [Suspect]
     Active Substance: NOREPINEPHRINE\NOREPINEPHRINE BITARTRATE
     Indication: Hypotension
  20. DOBUTAMINE [Concomitant]
     Active Substance: DOBUTAMINE HYDROCHLORIDE
     Indication: Hypotension
  21. NOREPINEPHRINE [Concomitant]
     Active Substance: NOREPINEPHRINE\NOREPINEPHRINE BITARTRATE
     Indication: Hypotension

REACTIONS (12)
  - Skin disorder [Unknown]
  - Skin exfoliation [Unknown]
  - Renal impairment [Recovering/Resolving]
  - Pyrexia [Unknown]
  - Off label use [Unknown]
  - Mucormycosis [Fatal]
  - Neutropenia [Not Recovered/Not Resolved]
  - Fungal sepsis [Fatal]
  - C-reactive protein increased [Unknown]
  - Drug ineffective for unapproved indication [Fatal]
  - Disseminated mucormycosis [Fatal]
  - Shock [Fatal]
